FAERS Safety Report 21243728 (Version 1)
Quarter: 2022Q3

REPORT INFORMATION
  Report Type: Report from Study
  Country: US (occurrence: US)
  Receive Date: 20220823
  Receipt Date: 20220823
  Transmission Date: 20221027
  Serious: Yes (Hospitalization)
  Sender: FDA-Public Use
  Company Number: US-VERTEX PHARMACEUTICALS-2022-012196

PATIENT
  Sex: Male

DRUGS (7)
  1. TRIKAFTA [Suspect]
     Active Substance: ELEXACAFTOR\IVACAFTOR\TEZACAFTOR
     Indication: Cystic fibrosis
     Dosage: 2 TABS AM; 1 TAB PM
     Route: 048
     Dates: start: 20191211
  2. AZITHROMYCIN [Concomitant]
     Active Substance: AZITHROMYCIN
  3. CAYSTON [Concomitant]
     Active Substance: AZTREONAM
  4. LINEZOLID [Concomitant]
     Active Substance: LINEZOLID
  5. PULMOZYME [Concomitant]
     Active Substance: DORNASE ALFA
  6. TOBI PODHALER [Concomitant]
     Active Substance: TOBRAMYCIN
  7. VITAMIN B6 [Concomitant]
     Active Substance: PYRIDOXINE HYDROCHLORIDE

REACTIONS (2)
  - Haemoptysis [Recovered/Resolved]
  - Lung disorder [Recovered/Resolved]
